FAERS Safety Report 8380224-1 (Version None)
Quarter: 2012Q2

REPORT INFORMATION
  Report Type: 
  Country: None (occurrence: None)
  Receive Date: 20120523
  Receipt Date: 20120517
  Transmission Date: 20120825
  Serious: Yes (Hospitalization, Other)
  Sender: FDA-Public Use
  Company Number: PHHY2012BR042863

PATIENT
  Sex: Male
  Weight: 102 kg

DRUGS (1)
  1. DIOVAN HCT [Suspect]
     Indication: HYPERTENSION
     Dosage: 1 DF (320 MG VALSA AND 12.5 MG HYDRO), PER DAY
     Route: 048
     Dates: start: 20120418, end: 20120419

REACTIONS (4)
  - BLOOD PRESSURE FLUCTUATION [None]
  - MENTAL IMPAIRMENT [None]
  - PSYCHOGENIC PAIN DISORDER [None]
  - HAEMORRHAGIC STROKE [None]
